FAERS Safety Report 5424572-3 (Version None)
Quarter: 2007Q3

REPORT INFORMATION
  Report Type: 
  Country: None (occurrence: None)
  Receive Date: 20070726
  Receipt Date: 20070412
  Transmission Date: 20080115
  Serious: No
  Sender: FDA-Public Use
  Company Number: POMP-10993

PATIENT
  Age: 58 Year
  Sex: Male
  Weight: 76 kg

DRUGS (2)
  1. MYOZYME [Suspect]
     Indication: GLYCOGEN STORAGE DISEASE TYPE II
     Dosage: 1500 UNITS Q2WKS IV
     Route: 042
     Dates: start: 20070124
  2. ANTIHYPERTENSIVE [Concomitant]

REACTIONS (1)
  - DIZZINESS [None]
